FAERS Safety Report 13883488 (Version 1)
Quarter: 2017Q3

REPORT INFORMATION
  Report Type: Other
  Country: GB (occurrence: US)
  Receive Date: 20170818
  Receipt Date: 20170818
  Transmission Date: 20171127
  Serious: Yes (Other)
  Sender: FDA-Public Use
  Company Number: US-INTERNATIONAL MEDICATION SYSTEMS, LIMITED-2024809

PATIENT
  Age: 65 Year
  Sex: Female

DRUGS (3)
  1. LIDOCAINE. [Concomitant]
     Active Substance: LIDOCAINE
  2. BUPIVACAINE. [Concomitant]
     Active Substance: BUPIVACAINE
  3. EPINEPHRINE. [Suspect]
     Active Substance: EPINEPHRINE
     Indication: LOCAL ANAESTHESIA

REACTIONS (1)
  - Peripheral ischaemia [Recovered/Resolved]
